FAERS Safety Report 9097517 (Version 1)
Quarter: 2013Q1

REPORT INFORMATION
  Report Type: Report from Study
  Country: GR (occurrence: GR)
  Receive Date: 20130212
  Receipt Date: 20130212
  Transmission Date: 20140127
  Serious: Yes (Hospitalization)
  Sender: FDA-Public Use
  Company Number: GR-US-EMD SERONO, INC.-7193057

PATIENT
  Age: 67 Year
  Sex: Female

DRUGS (5)
  1. REBIF [Suspect]
     Indication: MULTIPLE SCLEROSIS
     Route: 058
     Dates: start: 199809, end: 20130107
  2. REBIF [Suspect]
     Route: 058
     Dates: start: 20130112
  3. MODURETIC [Concomitant]
     Indication: HYPERTENSION
     Route: 048
  4. NORVASC [Concomitant]
     Indication: HYPERTENSION
     Route: 048
  5. MEDROL [Concomitant]
     Indication: HYPERTENSION
     Route: 048

REACTIONS (1)
  - Cystitis [Recovered/Resolved]
